FAERS Safety Report 15456201 (Version 1)
Quarter: 2018Q3

REPORT INFORMATION
  Report Type: Spontaneous
  Country: US (occurrence: US)
  Receive Date: 20180928
  Receipt Date: 20180928
  Transmission Date: 20181010
  Serious: Yes (Disabling, Other)
  Sender: FDA-Public Use
  Company Number: None

PATIENT
  Age: 72 Year
  Sex: Female
  Weight: 47.7 kg

DRUGS (13)
  1. DEXILANT [Concomitant]
     Active Substance: DEXLANSOPRAZOLE
  2. CALCIUM [Concomitant]
     Active Substance: CALCIUM
  3. FOLIC ACID METHYL FOLATE [Concomitant]
  4. WELLBUTYRIN SR [Concomitant]
  5. SINGULAIR [Concomitant]
     Active Substance: MONTELUKAST SODIUM
  6. NASONEX [Concomitant]
     Active Substance: MOMETASONE FUROATE
  7. VITAMIN E [Concomitant]
     Active Substance: .ALPHA.-TOCOPHEROL
  8. OCEAN SALINE NASAL SPRAY [Suspect]
     Active Substance: SODIUM CHLORIDE
     Indication: SINUS DISORDER
     Dosage: ?          OTHER STRENGTH:N/A;QUANTITY:4 OUNCE(S);?
     Route: 055
     Dates: start: 20170915, end: 20180925
  9. ARMOUR THYROID [Concomitant]
     Active Substance: THYROID, PORCINE
  10. XANAX [Concomitant]
     Active Substance: ALPRAZOLAM
  11. SOMA [Concomitant]
     Active Substance: CARISOPRODOL
  12. LIVALO [Concomitant]
     Active Substance: PITAVASTATIN CALCIUM
  13. VITAMIN D [Concomitant]
     Active Substance: CHOLECALCIFEROL

REACTIONS (7)
  - Neuropathy peripheral [None]
  - Product quality issue [None]
  - Poor quality drug administered [None]
  - Bronchial disorder [None]
  - Autoimmune disorder [None]
  - Laboratory test abnormal [None]
  - Protein total increased [None]

NARRATIVE: CASE EVENT DATE: 19800101
